FAERS Safety Report 4409684-5 (Version None)
Quarter: 2004Q3

REPORT INFORMATION
  Report Type: 
  Country: None (occurrence: None)
  Receive Date: 20040727
  Receipt Date: 20040408
  Transmission Date: 20050211
  Serious: Yes (Hospitalization)
  Sender: FDA-Public Use
  Company Number: 2004AP02189

PATIENT
  Age: 63 Year
  Sex: Male

DRUGS (35)
  1. ROSUVASTASTIN CODE NOT BROKEN [Suspect]
     Indication: RENAL FAILURE CHRONIC
     Dates: start: 20030811, end: 20040108
  2. ATENOLOL [Suspect]
     Indication: HYPERTENSION
     Dosage: 25 MG DAILY PO
     Route: 048
     Dates: start: 20040223, end: 20040222
  3. VITAMIN B COMPLEX CAP [Concomitant]
  4. FOLIC ACID [Concomitant]
  5. CALCITRIOL [Concomitant]
  6. PERIACTIN [Concomitant]
  7. PANAMAX [Concomitant]
  8. SLOW-K [Concomitant]
  9. FERRO-GRADUMET [Concomitant]
  10. PRAZOSIN HCL [Concomitant]
  11. POTASSIUM CHLORIDE [Concomitant]
  12. RAMIPRIL [Concomitant]
  13. ANGININE [Concomitant]
  14. DILTIAZEM [Concomitant]
  15. LASIX [Concomitant]
  16. RANITIDINE [Concomitant]
  17. NILSTAT [Concomitant]
  18. AMPHOTERICIN B [Concomitant]
  19. VALTREX [Concomitant]
  20. PREDNISOLONE [Concomitant]
  21. MYCOPHENOLATE [Concomitant]
  22. CYCLOSPORINE [Concomitant]
  23. SIMULECT [Concomitant]
  24. METHYLPREDNISOLONE [Concomitant]
  25. PHENERGAN [Concomitant]
  26. ACETAMINOPHEN [Concomitant]
  27. MOVICOL [Concomitant]
  28. COLOXYL WITH SENNA [Concomitant]
  29. LACTULOSE [Concomitant]
  30. MAGMIN [Concomitant]
  31. FERRUM H [Concomitant]
  32. AUGMENTIN DUO FORTE [Concomitant]
  33. CALTRATE [Concomitant]
  34. NORFLOXACIN [Concomitant]
  35. BACTRIM [Concomitant]

REACTIONS (15)
  - AORTIC VALVE DISEASE [None]
  - BLOOD PRESSURE IMMEASURABLE [None]
  - BRADYCARDIA [None]
  - DILATATION ATRIAL [None]
  - DIZZINESS [None]
  - EJECTION FRACTION DECREASED [None]
  - FALL [None]
  - FEELING HOT [None]
  - HYPERHIDROSIS [None]
  - HYPOTENSION [None]
  - LOSS OF CONSCIOUSNESS [None]
  - MYOCARDIAL ISCHAEMIA [None]
  - RENAL TRANSPLANT [None]
  - SCAN MYOCARDIAL PERFUSION ABNORMAL [None]
  - VENTRICULAR HYPERTROPHY [None]
